FAERS Safety Report 5054543-0 (Version None)
Quarter: 2006Q3

REPORT INFORMATION
  Report Type: 
  Country: None (occurrence: None)
  Receive Date: 20060714
  Receipt Date: 20060705
  Transmission Date: 20061208
  Serious: Yes (Hospitalization)
  Sender: FDA-Public Use
  Company Number: GXKR2006DE03802

PATIENT
  Age: 77 Year
  Sex: Male

DRUGS (1)
  1. AMITRIPTYLINE (NGX) (AMITRIPTYLINE)25MG [Suspect]
     Indication: DEPRESSION
     Dosage: 25 MG, BID, ORAL
     Route: 048
     Dates: start: 20060702, end: 20060704

REACTIONS (1)
  - HYPOGLYCAEMIA [None]
